FAERS Safety Report 4850483-8 (Version None)
Quarter: 2005Q4

REPORT INFORMATION
  Report Type: 
  Country: None (occurrence: None)
  Receive Date: 20051123
  Receipt Date: 20051013
  Transmission Date: 20060501
  Serious: Yes (Other)
  Sender: FDA-Public Use
  Company Number: 218610

PATIENT
  Age: 61 Year
  Sex: Male
  Weight: 82.1 kg

DRUGS (1)
  1. RAPTIVA [Suspect]
     Indication: PSORIASIS
     Dosage: 0.8 ML, 1/WEEK, SUBCUTANEOUS
     Route: 058
     Dates: start: 20040901, end: 20051010

REACTIONS (1)
  - INFLUENZA LIKE ILLNESS [None]
